FAERS Safety Report 8550263-6 (Version None)
Quarter: 2012Q3

REPORT INFORMATION
  Report Type: 
  Country: None (occurrence: None)
  Receive Date: 20120730
  Receipt Date: 20120724
  Transmission Date: 20120928
  Serious: Yes (Other)
  Sender: FDA-Public Use
  Company Number: PHHY2012BR064183

PATIENT
  Sex: Male
  Weight: 83 kg

DRUGS (4)
  1. TEGRETOL [Suspect]
     Indication: CONVULSION
     Dosage: 1 TABLET AT 8H A.M., 1 TABLET AT 4H P.M. AND 1 TABLET AT MIDNIGHT
     Route: 048
  2. TEGRETOL [Suspect]
     Dosage: 2 TABLETS AT 8H A.M., 2 TABLET AT 4H P.M., AND 2 TABLET AT MIDNIGHT
     Route: 048
  3. PHENYTOIN [Concomitant]
     Dosage: 1 TABLET AT 6H A.M., 1 TABLET AT NOON, 1 TABLET AT 6H P.M. AND 1 TABLET AT MIDNIGHT
     Route: 048
  4. CLONAZEPAM [Concomitant]
     Indication: ANXIETY
     Dosage: 1 TABLET EVERY 12 HOURS
     Route: 048

REACTIONS (13)
  - TREMOR [None]
  - MONOPLEGIA [None]
  - SKIN DISCOLOURATION [None]
  - TONGUE HAEMORRHAGE [None]
  - COORDINATION ABNORMAL [None]
  - DRUG DISPENSING ERROR [None]
  - CONVULSION [None]
  - MUSCLE RIGIDITY [None]
  - DROOLING [None]
  - ANGER [None]
  - FALL [None]
  - TONGUE INJURY [None]
  - AGGRESSION [None]
